FAERS Safety Report 6945757-0 (Version None)
Quarter: 2010Q3

REPORT INFORMATION
  Report Type: 
  Country: None (occurrence: None)
  Receive Date: 20100827
  Receipt Date: 20100820
  Transmission Date: 20110219
  Serious: Yes (Hospitalization)
  Sender: FDA-Public Use
  Company Number: A0877920A

PATIENT
  Age: 74 Year
  Sex: Male

DRUGS (2)
  1. AVANDIA [Suspect]
     Dosage: 4MG TWICE PER DAY
     Route: 048
     Dates: start: 20081101, end: 20090201
  2. AVANDARYL [Suspect]
     Route: 048
     Dates: start: 20000101, end: 20081101

REACTIONS (2)
  - CARDIAC FAILURE CONGESTIVE [None]
  - DECREASED ACTIVITY [None]
